FAERS Safety Report 19233096 (Version 14)
Quarter: 2023Q4

REPORT INFORMATION
  Report Type: Report from Study
  Country: JP (occurrence: JP)
  Receive Date: 20210507
  Receipt Date: 20231222
  Transmission Date: 20240110
  Serious: Yes (Hospitalization, Disabling, Other)
  Sender: FDA-Public Use
  Company Number: JP-ALNYLAM PHARMACEUTICALS, INC.-ALN-2021-001035

PATIENT

DRUGS (45)
  1. ONPATTRO [Suspect]
     Active Substance: PATISIRAN SODIUM
     Indication: Hereditary neuropathic amyloidosis
     Dosage: 16.5 MILLIGRAM
     Route: 041
     Dates: start: 20191209, end: 20191209
  2. ONPATTRO [Suspect]
     Active Substance: PATISIRAN SODIUM
     Dosage: 16.2 MILLIGRAM
     Route: 041
     Dates: start: 20200108, end: 20200108
  3. ONPATTRO [Suspect]
     Active Substance: PATISIRAN SODIUM
     Dosage: 15.9 MILLIGRAM
     Route: 041
     Dates: start: 20200129, end: 20200129
  4. ONPATTRO [Suspect]
     Active Substance: PATISIRAN SODIUM
     Dosage: 15.6 MILLIGRAM
     Route: 041
     Dates: start: 20200226, end: 20200415
  5. ONPATTRO [Suspect]
     Active Substance: PATISIRAN SODIUM
     Dosage: 15.9 MILLIGRAM
     Route: 041
     Dates: start: 20200513, end: 20200513
  6. ONPATTRO [Suspect]
     Active Substance: PATISIRAN SODIUM
     Dosage: 15.6 MILLIGRAM
     Route: 041
     Dates: start: 20200603, end: 20200603
  7. ONPATTRO [Suspect]
     Active Substance: PATISIRAN SODIUM
     Dosage: 15.3 MILLIGRAM
     Route: 041
     Dates: start: 20200624, end: 20220715
  8. ONPATTRO [Suspect]
     Active Substance: PATISIRAN SODIUM
     Dosage: 15 MILLIGRAM
     Route: 041
     Dates: start: 20200805, end: 20200805
  9. ONPATTRO [Suspect]
     Active Substance: PATISIRAN SODIUM
     Dosage: 14.7 MILLIGRAM
     Route: 041
     Dates: start: 20200826, end: 20200826
  10. ONPATTRO [Suspect]
     Active Substance: PATISIRAN SODIUM
     Dosage: 15 MILLIGRAM
     Route: 041
     Dates: start: 20200916, end: 20201007
  11. ONPATTRO [Suspect]
     Active Substance: PATISIRAN SODIUM
     Dosage: 15.3 MILLIGRAM
     Route: 041
     Dates: start: 20201028, end: 20201028
  12. ONPATTRO [Suspect]
     Active Substance: PATISIRAN SODIUM
     Dosage: 15.9 MILLIGRAM
     Route: 041
     Dates: start: 20201118, end: 20201118
  13. ONPATTRO [Suspect]
     Active Substance: PATISIRAN SODIUM
     Dosage: 16.5 MILLIGRAM
     Route: 041
     Dates: start: 20201209, end: 20201209
  14. ONPATTRO [Suspect]
     Active Substance: PATISIRAN SODIUM
     Dosage: 17.4 MILLIGRAM
     Route: 041
     Dates: start: 20210106, end: 20210217
  15. ONPATTRO [Suspect]
     Active Substance: PATISIRAN SODIUM
     Dosage: 16.8 MILLIGRAM
     Route: 041
     Dates: start: 20211025, end: 20211025
  16. ONPATTRO [Suspect]
     Active Substance: PATISIRAN SODIUM
     Dosage: 17.1 MILLIGRAM
     Route: 041
     Dates: start: 20211115, end: 20211115
  17. ONPATTRO [Suspect]
     Active Substance: PATISIRAN SODIUM
     Dosage: 18.0 MILLIGRAM
     Route: 041
     Dates: start: 20211206, end: 20211206
  18. ONPATTRO [Suspect]
     Active Substance: PATISIRAN SODIUM
     Dosage: 18.5 MILLIGRAM
     Route: 041
     Dates: start: 20211227, end: 20211227
  19. ONPATTRO [Suspect]
     Active Substance: PATISIRAN SODIUM
     Dosage: 18.6 MILLIGRAM
     Route: 041
     Dates: start: 20220117, end: 20220117
  20. ONPATTRO [Suspect]
     Active Substance: PATISIRAN SODIUM
     Dosage: 18.9 MILLIGRAM
     Route: 041
     Dates: start: 20220207, end: 20220207
  21. ONPATTRO [Suspect]
     Active Substance: PATISIRAN SODIUM
     Dosage: 19.2 MILLIGRAM
     Route: 041
     Dates: start: 20220228, end: 20220228
  22. ONPATTRO [Suspect]
     Active Substance: PATISIRAN SODIUM
     Dosage: 19.8 MILLIGRAM
     Route: 041
     Dates: start: 20220328, end: 20220328
  23. ONPATTRO [Suspect]
     Active Substance: PATISIRAN SODIUM
     Dosage: 20.1 MILLIGRAM
     Route: 041
     Dates: start: 20220418, end: 20220418
  24. ONPATTRO [Suspect]
     Active Substance: PATISIRAN SODIUM
     Dosage: 19.8 MILLIGRAM
     Route: 041
     Dates: start: 20220509, end: 20220620
  25. ONPATTRO [Suspect]
     Active Substance: PATISIRAN SODIUM
     Dosage: 19.5 MILLIGRAM
     Route: 041
     Dates: start: 20220711, end: 20220711
  26. ONPATTRO [Suspect]
     Active Substance: PATISIRAN SODIUM
     Dosage: 19.8 MILLIGRAM
     Route: 041
     Dates: start: 20220801, end: 20220801
  27. ONPATTRO [Suspect]
     Active Substance: PATISIRAN SODIUM
     Dosage: 18.9 MILLIGRAM
     Route: 041
     Dates: start: 20220822, end: 20220822
  28. ONPATTRO [Suspect]
     Active Substance: PATISIRAN SODIUM
     Dosage: 19.8 MILLIGRAM
     Route: 041
     Dates: start: 20220926, end: 20220926
  29. ONPATTRO [Suspect]
     Active Substance: PATISIRAN SODIUM
     Dosage: 20.1 MILLIGRAM
     Route: 041
     Dates: start: 20221017, end: 20221017
  30. ONPATTRO [Suspect]
     Active Substance: PATISIRAN SODIUM
     Dosage: 21.0 MILLIGRAM
     Route: 041
     Dates: start: 20221107, end: 20221128
  31. ONPATTRO [Suspect]
     Active Substance: PATISIRAN SODIUM
     Dosage: 20.4 MILLIGRAM
     Route: 041
     Dates: start: 20221227, end: 20221227
  32. ONPATTRO [Suspect]
     Active Substance: PATISIRAN SODIUM
     Dosage: 21.3 MILLIGRAM
     Route: 041
     Dates: start: 20230116, end: 20230116
  33. GASTER [Concomitant]
     Active Substance: FAMOTIDINE
     Indication: Prophylaxis
     Dosage: 20 MILLIGRAM, SINGLE
     Route: 041
     Dates: start: 20200108, end: 20230116
  34. POLARAMINE [Concomitant]
     Active Substance: DEXCHLORPHENIRAMINE MALEATE
     Indication: Prophylaxis
     Dosage: 5 MILLIGRAM, SINGLE
     Route: 041
     Dates: start: 20200108, end: 20230116
  35. DEXAMETHASONE SODIUM PHOSPHATE [Concomitant]
     Active Substance: DEXAMETHASONE PHOSPHATE\DEXAMETHASONE SODIUM PHOSPHATE
     Indication: Prophylaxis
     Dosage: 12 MILLIGRAM, SINGLE
     Route: 041
     Dates: start: 20200108, end: 20230116
  36. DEXAMETHASONE SODIUM PHOSPHATE [Concomitant]
     Active Substance: DEXAMETHASONE PHOSPHATE\DEXAMETHASONE SODIUM PHOSPHATE
     Dosage: 9.9 MILLIGRAM, SINGLE
     Route: 041
  37. CALONAL [Concomitant]
     Active Substance: ACETAMINOPHEN
     Indication: Prophylaxis
     Dosage: 500 MILLIGRAM, SINGLE
     Route: 048
     Dates: start: 20200108, end: 20230116
  38. VITAMINS [Concomitant]
     Active Substance: VITAMINS
     Indication: Vitamin supplementation
     Dosage: 1 GRAM, QD
     Route: 048
     Dates: start: 20200108, end: 20230116
  39. VITAMINS [Concomitant]
     Active Substance: VITAMINS
     Indication: Prophylaxis
  40. DROXIDOPA [Concomitant]
     Active Substance: DROXIDOPA
     Indication: Hereditary neuropathic amyloidosis
     Dosage: 300 MILLIGRAM
     Route: 048
     Dates: end: 20210217
  41. BIO-THREE [Concomitant]
     Active Substance: HERBALS
     Indication: Hereditary neuropathic amyloidosis
     Dosage: 3 DOSAGE FORM
     Route: 048
     Dates: end: 20210217
  42. VITAMINS [Concomitant]
     Active Substance: VITAMINS
     Indication: Hereditary neuropathic amyloidosis
     Dosage: 2 DOSAGE FORM
     Route: 048
     Dates: end: 20210217
  43. DROXIDOPA [Concomitant]
     Active Substance: DROXIDOPA
     Indication: Product used for unknown indication
     Dosage: 100 MILLIGRAM, TID
     Route: 065
     Dates: end: 20210425
  44. MIYA-BM [Concomitant]
     Active Substance: CLOSTRIDIUM BUTYRICUM SPORES STRAIN M-55
     Indication: Product used for unknown indication
     Dosage: 20 MILLIGRAM, TID
     Route: 048
     Dates: end: 20210425
  45. ASPIRIN [Concomitant]
     Active Substance: ASPIRIN
     Indication: Prophylaxis
     Dosage: 100 MILLIGRAM, QD
     Route: 065

REACTIONS (4)
  - Vitreous opacities [Not Recovered/Not Resolved]
  - Femoral neck fracture [Recovering/Resolving]
  - Cerebral infarction [Recovering/Resolving]
  - Fall [Recovering/Resolving]

NARRATIVE: CASE EVENT DATE: 20210107
